FAERS Safety Report 20544005 (Version 1)
Quarter: 2022Q1

REPORT INFORMATION
  Report Type: Spontaneous
  Country: US (occurrence: US)
  Receive Date: 20220303
  Receipt Date: 20220303
  Transmission Date: 20220423
  Serious: No
  Sender: FDA-Public Use
  Company Number: US-NOVARTISTESTPH-NVSC2022US049549

PATIENT
  Sex: Female

DRUGS (1)
  1. KETOROLAC TROMETHAMINE [Suspect]
     Active Substance: KETOROLAC TROMETHAMINE
     Indication: Product used for unknown indication
     Dosage: 5 ML, 1 DROP RIGHT EYE/ 4X/DAILY FOR 5 DAYS
     Route: 065
     Dates: start: 20211219, end: 20220125

REACTIONS (5)
  - Frustration tolerance decreased [Unknown]
  - Paraesthesia [Unknown]
  - Insomnia [Unknown]
  - Gait disturbance [Unknown]
  - Pain [Unknown]
